FAERS Safety Report 10005501 (Version 1)
Quarter: 2014Q1

REPORT INFORMATION
  Report Type: Report from Study
  Country: US (occurrence: US)
  Receive Date: 20140313
  Receipt Date: 20140313
  Transmission Date: 20141002
  Serious: Yes (Other)
  Sender: FDA-Public Use
  Company Number: US-ROCHE-1361301

PATIENT
  Age: 69 Year
  Sex: Female

DRUGS (8)
  1. HERCEPTIN [Suspect]
     Indication: BREAST CANCER METASTATIC
     Dosage: 1L
     Route: 065
  2. HERCEPTIN [Suspect]
     Dosage: 2L
     Route: 065
  3. PERJETA [Suspect]
     Indication: BREAST CANCER METASTATIC
     Dosage: 1L
     Route: 065
  4. PERJETA [Suspect]
     Dosage: 2L
     Route: 065
  5. KADCYLA [Suspect]
     Indication: BREAST CANCER METASTATIC
     Dosage: 3L
     Route: 065
  6. ADRIAMYCIN [Concomitant]
     Dosage: 1L
     Route: 065
  7. CYTOXAN [Concomitant]
     Dosage: 1L
     Route: 065
  8. TAXOTERE [Concomitant]
     Dosage: 2L
     Route: 065

REACTIONS (1)
  - Febrile neutropenia [Unknown]
